FAERS Safety Report 10517350 (Version 1)
Quarter: 2014Q4

REPORT INFORMATION
  Report Type: Report from Study
  Country: BR (occurrence: BR)
  Receive Date: 20141014
  Receipt Date: 20141014
  Transmission Date: 20150528
  Serious: Yes (Death, Other)
  Sender: FDA-Public Use
  Company Number: PHHY2014BR131625

PATIENT
  Age: 85 Year
  Sex: Male
  Weight: 63 kg

DRUGS (3)
  1. RIVOTRIL [Concomitant]
     Active Substance: CLONAZEPAM
     Indication: INSOMNIA
     Dosage: 5 MG, QD AT NIGHT
  2. LOSARTAN [Suspect]
     Active Substance: LOSARTAN
     Indication: CARDIAC DISORDER
     Dosage: 1 DF, BID IN THE MORNING AND AT NIGHT
     Route: 048
  3. INSULIN [Concomitant]
     Active Substance: INSULIN NOS
     Indication: DIABETES MELLITUS
     Dosage: IN THE MORNING AND AT NIGHT
     Route: 065

REACTIONS (2)
  - Weight decreased [Unknown]
  - Hypoxia [Fatal]

NARRATIVE: CASE EVENT DATE: 20130713
